FAERS Safety Report 4726068-0 (Version None)
Quarter: 2005Q3

REPORT INFORMATION
  Report Type: 
  Country: None (occurrence: None)
  Receive Date: 20050727
  Receipt Date: 20050718
  Transmission Date: 20060218
  Serious: Yes (Hospitalization)
  Sender: FDA-Public Use
  Company Number: PHRM2005FR02125

PATIENT
  Age: 67 Year
  Sex: Female
  Weight: 53 kg

DRUGS (7)
  1. AREDIA [Suspect]
     Indication: MULTIPLE MYELOMA
     Dosage: 90 MG EVERY 4 WEEKS
     Route: 042
     Dates: start: 19990810, end: 20021218
  2. ALKERAN [Concomitant]
     Indication: MULTIPLE MYELOMA
     Dosage: 2 MG, QID
     Route: 048
     Dates: start: 19990810, end: 20011219
  3. ALKERAN [Concomitant]
     Dosage: 2 MG, QID
     Route: 048
     Dates: start: 20021018, end: 20040422
  4. DEXAMETHASONE [Concomitant]
     Indication: MULTIPLE MYELOMA
     Dosage: 40 MG, QID
     Route: 048
     Dates: start: 19990810, end: 20011219
  5. DEXAMETHASONE [Concomitant]
     Dosage: 40 MG, QID
     Route: 048
     Dates: start: 20021018, end: 20040422
  6. THALIDOMIDE [Concomitant]
     Indication: MULTIPLE MYELOMA
     Dosage: 200 MG/DAY
     Route: 048
     Dates: start: 20040607, end: 20050124
  7. ZOMETA [Suspect]
     Indication: MULTIPLE MYELOMA
     Dosage: 4 MG EVERY 6 WEEKS
     Route: 042
     Dates: start: 20021218, end: 20050620

REACTIONS (4)
  - ACTINOMYCOSIS [None]
  - JAW DISORDER [None]
  - OSTEITIS [None]
  - OSTEOLYSIS [None]
